FAERS Safety Report 5301023-0 (Version None)
Quarter: 2007Q1

REPORT INFORMATION
  Report Type: 
  Country: None (occurrence: None)
  Receive Date: 20070201
  Receipt Date: 20061221
  Transmission Date: 20070707
  Serious: No
  Sender: FDA-Public Use
  Company Number: 2006PV027267

PATIENT
  Age: 73 Year
  Sex: Male
  Weight: 106.5953 kg

DRUGS (19)
  1. BYETTA [Suspect]
     Indication: DIABETES MELLITUS NON-INSULIN-DEPENDENT
     Dosage: SEE IMAGE
     Route: 058
     Dates: start: 20060201, end: 20060101
  2. BYETTA [Suspect]
     Indication: DIABETES MELLITUS NON-INSULIN-DEPENDENT
     Dosage: SEE IMAGE
     Route: 058
     Dates: start: 20050101, end: 20060201
  3. BYETTA [Suspect]
     Indication: DIABETES MELLITUS NON-INSULIN-DEPENDENT
     Dosage: SEE IMAGE
     Route: 058
     Dates: start: 20061001, end: 20061219
  4. BYETTA [Suspect]
     Indication: DIABETES MELLITUS NON-INSULIN-DEPENDENT
     Dosage: SEE IMAGE
     Route: 058
     Dates: start: 20061220
  5. LEVAQUIN [Concomitant]
  6. GLUCOPHAGE [Concomitant]
  7. HEART MEDICATIONS [Concomitant]
  8. GLUCOTROL ER [Concomitant]
  9. LEVEMIR [Concomitant]
  10. TOPROL-XL [Concomitant]
  11. BENICAR [Concomitant]
  12. PROTONIX [Concomitant]
  13. ASPIRIN [Concomitant]
  14. CENTRUM SILVER [Concomitant]
  15. ASCORBIC ACID [Concomitant]
  16. CALCIUM [Concomitant]
  17. FLOMAX [Concomitant]
  18. CRESTOR [Concomitant]
  19. SYNTHROID [Concomitant]

REACTIONS (7)
  - BLOOD GLUCOSE FLUCTUATION [None]
  - CONSTIPATION [None]
  - DRUG INEFFECTIVE [None]
  - DRY MOUTH [None]
  - EXTRASYSTOLES [None]
  - THROAT TIGHTNESS [None]
  - WEIGHT DECREASED [None]
